FAERS Safety Report 9263204 (Version 1)
Quarter: 2013Q2

REPORT INFORMATION
  Report Type: Spontaneous
  Country: US (occurrence: None)
  Receive Date: 20130426
  Receipt Date: 20130426
  Transmission Date: 20140414
  Serious: Yes (Hospitalization)
  Sender: FDA-Public Use
  Company Number: None

PATIENT
  Age: 74 Year
  Sex: 0
  Weight: 94.09 kg

DRUGS (4)
  1. 5-FLUOROURACIL [Concomitant]
  2. BEVACIZUMAB (RHUMAB VEGF) [Concomitant]
  3. LEUCOVORIN [Concomitant]
  4. OXALIPLATIN [Suspect]

REACTIONS (3)
  - Neuropathy peripheral [None]
  - Balance disorder [None]
  - Motor dysfunction [None]
